FAERS Safety Report 20122974 (Version 1)
Quarter: 2021Q4

REPORT INFORMATION
  Report Type: Spontaneous
  Country: US (occurrence: US)
  Receive Date: 20211129
  Receipt Date: 20211129
  Transmission Date: 20220303
  Serious: No
  Sender: FDA-Public Use
  Company Number: US-UCBSA-2021037081

PATIENT
  Sex: Male

DRUGS (2)
  1. VIMPAT [Suspect]
     Active Substance: LACOSAMIDE
     Indication: Product used for unknown indication
     Dosage: 100 MILLIGRAM
  2. VIMPAT [Suspect]
     Active Substance: LACOSAMIDE
     Dosage: CUTTING THE 100 MG TABLETS TO MAKE IT 50 MG

REACTIONS (4)
  - Dysphonia [Unknown]
  - Headache [Unknown]
  - Abdominal pain upper [Unknown]
  - Wrong technique in product usage process [Unknown]
